FAERS Safety Report 6626837-6 (Version None)
Quarter: 2010Q1

REPORT INFORMATION
  Report Type: 
  Country: None (occurrence: None)
  Receive Date: 20100308
  Receipt Date: 20100301
  Transmission Date: 20100710
  Serious: Yes (Death)
  Sender: FDA-Public Use
  Company Number: 2010SP012412

PATIENT
  Sex: Female

DRUGS (1)
  1. REMERON [Suspect]
     Indication: DEPRESSION
     Dosage: ; PO
     Route: 048

REACTIONS (1)
  - COMPLETED SUICIDE [None]
